FAERS Safety Report 5147077-6 (Version None)
Quarter: 2006Q4

REPORT INFORMATION
  Report Type: 
  Country: None (occurrence: None)
  Receive Date: 20061102
  Receipt Date: 20061025
  Transmission Date: 20070319
  Serious: Yes (Hospitalization)
  Sender: FDA-Public Use
  Company Number: 2006SP003737

PATIENT
  Age: 53 Year
  Sex: Male

DRUGS (2)
  1. PEG-INTRON [Suspect]
     Indication: HEPATITIS C
     Dosage: SC
     Dates: start: 20060905
  2. RIBAVIRIN [Suspect]
     Indication: HEPATITIS C
     Dates: start: 20060905

REACTIONS (5)
  - DEPRESSION [None]
  - HEPATIC ENZYME INCREASED [None]
  - INCORRECT DOSE ADMINISTERED [None]
  - PANIC ATTACK [None]
  - PYREXIA [None]
